FAERS Safety Report 25088581 (Version 1)
Quarter: 2025Q1

REPORT INFORMATION
  Report Type: Spontaneous
  Country: US (occurrence: US)
  Receive Date: 20250318
  Receipt Date: 20250318
  Transmission Date: 20250409
  Serious: Yes (Hospitalization)
  Sender: MYLAN
  Company Number: US-MYLANLABS-2025M1021630

PATIENT
  Age: 48 Year
  Sex: Female

DRUGS (1)
  1. METHIMAZOLE [Suspect]
     Active Substance: METHIMAZOLE
     Indication: Graves^ disease

REACTIONS (5)
  - Hepatic failure [Recovered/Resolved]
  - Drug-induced liver injury [Recovered/Resolved]
  - Portal hypertension [Recovered/Resolved]
  - Ascites [Recovered/Resolved]
  - Coagulopathy [Recovered/Resolved]
